FAERS Safety Report 8008885-7 (Version None)
Quarter: 2011Q4

REPORT INFORMATION
  Report Type: 
  Country: None (occurrence: None)
  Receive Date: 20111227
  Receipt Date: 20111221
  Transmission Date: 20120403
  Serious: Yes (Life-Threatening)
  Sender: FDA-Public Use
  Company Number: FR-ASTRAZENECA-2011SE77701

PATIENT
  Age: 14243 Day
  Sex: Female

DRUGS (4)
  1. CELOCURINE [Suspect]
     Indication: PHLEBECTOMY
     Route: 042
     Dates: start: 20110401, end: 20110401
  2. ULTIVA [Suspect]
     Indication: PHLEBECTOMY
     Route: 042
     Dates: start: 20110401, end: 20110401
  3. FLUTICASONE PROPIONATE/SALMETEROL [Concomitant]
     Indication: ASTHMA
  4. DIPRIVAN [Suspect]
     Indication: PHLEBECTOMY
     Route: 042
     Dates: start: 20110401, end: 20110401

REACTIONS (1)
  - ANAPHYLACTIC SHOCK [None]
